FAERS Safety Report 4700098-7 (Version None)
Quarter: 2005Q2

REPORT INFORMATION
  Report Type: 
  Country: None (occurrence: None)
  Receive Date: 20050627
  Receipt Date: 20050601
  Transmission Date: 20051028
  Serious: Yes (Life-Threatening, Hospitalization, Other)
  Sender: FDA-Public Use
  Company Number: PHRM2005FR01720

PATIENT
  Age: 80 Year
  Sex: Male
  Weight: 69 kg

DRUGS (3)
  1. COZAAR [Concomitant]
     Indication: HYPERTENSION
     Dosage: UNK, UNK
     Route: 048
  2. EXELON [Suspect]
     Indication: DEMENTIA
     Dosage: 3 MG/DAY
     Route: 048
     Dates: start: 20041203, end: 20050129
  3. MODOPAR [Concomitant]
     Indication: PARKINSONISM
     Route: 048
     Dates: start: 20041203

REACTIONS (3)
  - ELECTROENCEPHALOGRAM ABNORMAL [None]
  - GRAND MAL CONVULSION [None]
  - STATUS EPILEPTICUS [None]
